FAERS Safety Report 22355310 (Version 4)
Quarter: 2023Q4

REPORT INFORMATION
  Report Type: Spontaneous
  Country: US (occurrence: US)
  Receive Date: 20230523
  Receipt Date: 20231010
  Transmission Date: 20240109
  Serious: Yes (Hospitalization, Other)
  Sender: FDA-Public Use
  Company Number: US-PFIZER INC-PV202300088808

PATIENT
  Age: 58 Year
  Sex: Female

DRUGS (2)
  1. IBRANCE [Suspect]
     Active Substance: PALBOCICLIB
     Dosage: UNK
     Dates: end: 202306
  2. IBRANCE [Suspect]
     Active Substance: PALBOCICLIB
     Dosage: 100 MG, DAILY

REACTIONS (9)
  - Dysentery [Unknown]
  - Diarrhoea [Not Recovered/Not Resolved]
  - Cholelithiasis [Recovered/Resolved]
  - Dehydration [Unknown]
  - Full blood count decreased [Unknown]
  - Hypotension [Unknown]
  - Abdominal distension [Not Recovered/Not Resolved]
  - White blood cell count decreased [Unknown]
  - Alopecia [Unknown]

NARRATIVE: CASE EVENT DATE: 20230101
